FAERS Safety Report 14984033 (Version 1)
Quarter: 2018Q2

REPORT INFORMATION
  Report Type: Spontaneous
  Country: US (occurrence: US)
  Receive Date: 20180515
  Receipt Date: 20180515
  Transmission Date: 20180711
  Serious: No
  Sender: FDA-Public Use
  Company Number: None

PATIENT
  Age: 66 Year
  Sex: Male

DRUGS (1)
  1. TENOFOVIR 300 MG AUROBINDO [Suspect]
     Active Substance: TENOFOVIR
     Indication: HEPATITIS B
     Route: 048
     Dates: start: 20180103

REACTIONS (2)
  - Haematochezia [None]
  - Dysuria [None]

NARRATIVE: CASE EVENT DATE: 20180511
